FAERS Safety Report 15665103 (Version 1)
Quarter: 2018Q4

REPORT INFORMATION
  Report Type: Spontaneous
  Country: BE (occurrence: BE)
  Receive Date: 20181128
  Receipt Date: 20181128
  Transmission Date: 20190205
  Serious: Yes (Other)
  Sender: FDA-Public Use
  Company Number: BE-SA-2018SA145848

PATIENT
  Sex: Female

DRUGS (3)
  1. LEMTRADA [Suspect]
     Active Substance: ALEMTUZUMAB
     Dosage: UNK
  2. LEMTRADA [Suspect]
     Active Substance: ALEMTUZUMAB
     Dosage: UNK
  3. NATALIZUMAB [Concomitant]
     Active Substance: NATALIZUMAB
     Dosage: UNK

REACTIONS (2)
  - Migraine [Recovered/Resolved]
  - Meniere^s disease [Recovered/Resolved]
